FAERS Safety Report 9640242 (Version 2)
Quarter: 2013Q4

REPORT INFORMATION
  Report Type: Spontaneous
  Country: US (occurrence: US)
  Receive Date: 20131023
  Receipt Date: 20131113
  Transmission Date: 20140711
  Serious: No
  Sender: FDA-Public Use
  Company Number: US-PFIZER INC-2013300513

PATIENT
  Age: 51 Year
  Sex: Female
  Weight: 82 kg

DRUGS (9)
  1. LYRICA [Suspect]
     Indication: FIBROMYALGIA
     Dosage: 60 MG, UNK
     Dates: start: 20131008
  2. LYRICA [Suspect]
     Indication: BACK PAIN
     Dosage: 75 MG, 2X/DAY
     Dates: start: 201310, end: 20131015
  3. LYRICA [Suspect]
     Indication: PAIN IN EXTREMITY
  4. CYMBALTA [Suspect]
     Indication: FIBROMYALGIA
     Dosage: UNK
  5. CYMBALTA [Suspect]
     Indication: BACK PAIN
  6. CYMBALTA [Suspect]
     Indication: PAIN IN EXTREMITY
  7. SYNTHROID [Concomitant]
     Dosage: UNK
  8. XELJANZ [Concomitant]
     Dosage: UNK
  9. NAPROXEN [Concomitant]
     Dosage: UNK

REACTIONS (2)
  - Drug ineffective [Not Recovered/Not Resolved]
  - Insomnia [Not Recovered/Not Resolved]
